FAERS Safety Report 4648335-1 (Version None)
Quarter: 2005Q2

REPORT INFORMATION
  Report Type: 
  Country: None (occurrence: None)
  Receive Date: 20050427
  Receipt Date: 20050427
  Transmission Date: 20051028
  Serious: Yes (Hospitalization)
  Sender: FDA-Public Use
  Company Number: None

PATIENT
  Age: 45 Year
  Sex: Male

DRUGS (3)
  1. MESNA [Suspect]
     Indication: SARCOMA
     Dosage: EVERY 3 WEEKS 12 DOSES OVER 4 DAYS
     Dates: end: 20050417
  2. EPIRUBICIN [Suspect]
     Dosage: EVERY 3 WEEKS QD X 4 DAYS
     Dates: end: 20050417
  3. IFOSFAMIDE [Suspect]
     Dosage: 4300 MG  X 4 DAYS EVERY 3 WEEKS
     Dates: end: 20050417

REACTIONS (3)
  - FEBRILE NEUTROPENIA [None]
  - HAEMOGLOBIN DECREASED [None]
  - PLATELET COUNT ABNORMAL [None]
